FAERS Safety Report 6827394-1 (Version None)
Quarter: 2010Q3

REPORT INFORMATION
  Report Type: 
  Country: None (occurrence: None)
  Receive Date: 20100709
  Receipt Date: 20070111
  Transmission Date: 20110219
  Serious: No
  Sender: FDA-Public Use
  Company Number: US-PFIZER INC-2007004455

PATIENT
  Sex: Female
  Weight: 54.43 kg

DRUGS (5)
  1. CHANTIX [Suspect]
     Dates: start: 20061201, end: 20070101
  2. CENTRUM [Concomitant]
  3. VITAMIN E [Concomitant]
  4. ACETYLSALICYLIC ACID [Concomitant]
  5. VITAMIN B COMPLEX CAP [Concomitant]

REACTIONS (2)
  - CONSTIPATION [None]
  - MUSCLE SPASMS [None]
